FAERS Safety Report 7819623-2 (Version None)
Quarter: 2011Q4

REPORT INFORMATION
  Report Type: 
  Country: None (occurrence: None)
  Receive Date: 20111018
  Receipt Date: 20111018
  Transmission Date: 20120403
  Serious: No
  Sender: FDA-Public Use
  Company Number: None

PATIENT
  Age: 48 Year
  Sex: Male
  Weight: 95.254 kg

DRUGS (1)
  1. PROPECIA [Suspect]
     Indication: ANDROGENETIC ALOPECIA
     Dosage: ONCE
     Route: 048
     Dates: start: 20070101, end: 20110101

REACTIONS (4)
  - ERECTILE DYSFUNCTION [None]
  - LOSS OF LIBIDO [None]
  - PENILE SIZE REDUCED [None]
  - PEYRONIE'S DISEASE [None]
